FAERS Safety Report 18477279 (Version 1)
Quarter: 2020Q4

REPORT INFORMATION
  Report Type: Spontaneous
  Country: GB (occurrence: GB)
  Receive Date: 20201107
  Receipt Date: 20201107
  Transmission Date: 20210114
  Serious: Yes (Other)
  Sender: FDA-Public Use
  Company Number: GB-TEVA-2020-GB-1845110

PATIENT
  Sex: Male

DRUGS (3)
  1. CARBAMAZEPINE. [Suspect]
     Active Substance: CARBAMAZEPINE
     Route: 064
  2. MIANSERIN [Suspect]
     Active Substance: MIANSERIN
     Route: 064
  3. GLUTETHIMIDE [Suspect]
     Active Substance: GLUTETHIMIDE
     Route: 064

REACTIONS (3)
  - Foetal exposure during pregnancy [Unknown]
  - Crohn^s disease [Unknown]
  - Autism spectrum disorder [Unknown]
